FAERS Safety Report 4651456-0 (Version None)
Quarter: 2005Q2

REPORT INFORMATION
  Report Type: 
  Country: None (occurrence: None)
  Receive Date: 20050429
  Receipt Date: 20050418
  Transmission Date: 20051028
  Serious: Yes (Hospitalization)
  Sender: FDA-Public Use
  Company Number: GXKR2005IT00915

PATIENT
  Age: 43 Year
  Sex: Male

DRUGS (17)
  1. FLUCONAZOLE [Suspect]
     Indication: PYREXIA
     Dosage: 200 MG, QD
  2. METHADONE HCL [Suspect]
     Indication: DRUG DEPENDENCE
     Dosage: SEE IMAGE
  3. NELFINAVIR (NELFINAVIR) [Suspect]
     Indication: HIV INFECTION
     Dosage: 250 MG
  4. LAMIVUDINE [Suspect]
     Indication: HIV INFECTION
     Dosage: 300 MG
  5. STAVUDINE [Suspect]
     Indication: HIV INFECTION
     Dosage: 80 MG
  6. PROPRANOLOL [Concomitant]
  7. ENALAPRIL MALEATE [Concomitant]
  8. FUROSEMIDE [Concomitant]
  9. ALDACTAZIDE [Concomitant]
  10. OMEPRAZOLE [Concomitant]
  11. ALLOPURINOL [Concomitant]
  12. PHYTONADIONE [Concomitant]
  13. LACTULOSE [Concomitant]
  14. CALCIUM LEVOFOLINATE (CALCIUM LEVOFOLINATE) [Concomitant]
  15. FERROUS SULFATE TAB [Concomitant]
  16. PAROMOMYCIN (PAROMOMYCIN) [Concomitant]
  17. CEFTRIAXONE [Concomitant]

REACTIONS (18)
  - ARTERIOSCLEROSIS [None]
  - DILATATION ATRIAL [None]
  - DRUG INTERACTION [None]
  - ELECTROCARDIOGRAM QT PROLONGED [None]
  - HYPERBILIRUBINAEMIA [None]
  - HYPERCREATININAEMIA [None]
  - HYPERTENSIVE CARDIOMYOPATHY [None]
  - HYPERURICAEMIA [None]
  - HYPOALBUMINAEMIA [None]
  - HYPOCHOLESTEROLAEMIA [None]
  - HYPOGLYCAEMIA [None]
  - LOSS OF CONSCIOUSNESS [None]
  - MITRAL VALVE INCOMPETENCE [None]
  - PANCYTOPENIA [None]
  - TORSADE DE POINTES [None]
  - VENTRICULAR ARRHYTHMIA [None]
  - VENTRICULAR EXTRASYSTOLES [None]
  - VERTIGO [None]
